FAERS Safety Report 4518427-6 (Version None)
Quarter: 2004Q4

REPORT INFORMATION
  Report Type: 
  Country: None (occurrence: None)
  Receive Date: 20041202
  Receipt Date: 20041129
  Transmission Date: 20050328
  Serious: Yes (Life-Threatening, Hospitalization)
  Sender: FDA-Public Use
  Company Number: THQ2004A00989

PATIENT
  Age: 70 Year
  Sex: Male

DRUGS (5)
  1. LANSOPRAZOLE [Suspect]
     Indication: GASTROOESOPHAGEAL REFLUX DISEASE
     Dosage: 30 MG PER ORAL
     Route: 048
     Dates: start: 20040901, end: 20041001
  2. METFORMIN HCL [Concomitant]
  3. SIMVASTATIN [Concomitant]
  4. ASPIRIN [Concomitant]
  5. BETA BLOCKER (BETA BLOCKING AGENTS) [Concomitant]

REACTIONS (3)
  - BLOOD URINE PRESENT [None]
  - PROTEINURIA [None]
  - RENAL FAILURE ACUTE [None]
